FAERS Safety Report 11695583 (Version 1)
Quarter: 2015Q4

REPORT INFORMATION
  Report Type: Spontaneous
  Country: CA (occurrence: CA)
  Receive Date: 20151104
  Receipt Date: 20151104
  Transmission Date: 20160304
  Serious: Yes (Other)
  Sender: FDA-Public Use
  Company Number: CA-ROCHE-1654601

PATIENT
  Sex: Female

DRUGS (13)
  1. ACTEMRA [Suspect]
     Active Substance: TOCILIZUMAB
     Route: 042
     Dates: start: 201308, end: 201311
  2. ACTEMRA [Suspect]
     Active Substance: TOCILIZUMAB
     Route: 042
     Dates: start: 201405, end: 20150824
  3. ALBUTEROL. [Concomitant]
     Active Substance: ALBUTEROL
  4. HYDROXYCHLOROQUINE [Concomitant]
     Active Substance: HYDROXYCHLOROQUINE
  5. ACTEMRA [Suspect]
     Active Substance: TOCILIZUMAB
     Indication: RHEUMATOID ARTHRITIS
     Route: 042
     Dates: start: 201212, end: 201305
  6. LORAZEPAM. [Concomitant]
     Active Substance: LORAZEPAM
  7. TEMAZEPAM. [Concomitant]
     Active Substance: TEMAZEPAM
  8. TYLENOL EXTRA STRENGTH [Concomitant]
     Active Substance: ACETAMINOPHEN
  9. ALLEGRA [Concomitant]
     Active Substance: FEXOFENADINE HYDROCHLORIDE
  10. ROZEREM [Concomitant]
     Active Substance: RAMELTEON
  11. RITUXAN [Suspect]
     Active Substance: RITUXIMAB
     Indication: RHEUMATOID ARTHRITIS
     Route: 042
     Dates: start: 20140109, end: 20140121
  12. PREDNISONE. [Concomitant]
     Active Substance: PREDNISONE
  13. RANITIDINE [Concomitant]
     Active Substance: RANITIDINE\RANITIDINE HYDROCHLORIDE

REACTIONS (6)
  - Weight increased [Unknown]
  - Fatigue [Unknown]
  - Abdominal pain [Recovering/Resolving]
  - Malaise [Unknown]
  - Hypersensitivity [Unknown]
  - Swelling face [Recovered/Resolved]

NARRATIVE: CASE EVENT DATE: 2013
